FAERS Safety Report 7431953-5 (Version None)
Quarter: 2011Q2

REPORT INFORMATION
  Report Type: 
  Country: None (occurrence: None)
  Receive Date: 20110419
  Receipt Date: 20110419
  Transmission Date: 20111010
  Serious: Yes (Hospitalization)
  Sender: FDA-Public Use
  Company Number: None

PATIENT
  Sex: Female
  Weight: 87.4 kg

DRUGS (2)
  1. FLUDARABINE PHOSPHATE [Suspect]
     Dosage: 178.2 MG
     Dates: end: 20110304
  2. CYCLOPHOSPHAMIDE [Suspect]
     Dosage: 1782 MG
     Dates: end: 20110304

REACTIONS (5)
  - EOSINOPHILIA [None]
  - HYPOTENSION [None]
  - FATIGUE [None]
  - SUPRAVENTRICULAR TACHYCARDIA [None]
  - LIP SWELLING [None]
